FAERS Safety Report 10108963 (Version 4)
Quarter: 2015Q1

REPORT INFORMATION
  Report Type: Spontaneous
  Country: AU (occurrence: AU)
  Receive Date: 20140425
  Receipt Date: 20150304
  Transmission Date: 20150720
  Serious: Yes (Other)
  Sender: FDA-Public Use
  Company Number: AU-ABBVIE-14P-008-1225633-00

PATIENT
  Age: 23 Year
  Sex: Female

DRUGS (1)
  1. HUMIRA [Suspect]
     Active Substance: ADALIMUMAB
     Indication: CROHN^S DISEASE
     Route: 058
     Dates: start: 2012

REACTIONS (6)
  - Fistula [Unknown]
  - Mouth ulceration [Unknown]
  - Crohn^s disease [Not Recovered/Not Resolved]
  - Abdominal abscess [Unknown]
  - Drug ineffective [Unknown]
  - Erythema nodosum [Unknown]

NARRATIVE: CASE EVENT DATE: 201308
